FAERS Safety Report 24261931 (Version 1)
Quarter: 2024Q3

REPORT INFORMATION
  Report Type: Report from Study
  Country: CL (occurrence: CL)
  Receive Date: 20240829
  Receipt Date: 20240829
  Transmission Date: 20241016
  Serious: Yes (Death, Other)
  Sender: UCB
  Company Number: CL-UCBSA-2024043869

PATIENT
  Age: 77 Year
  Sex: Male

DRUGS (1)
  1. ROTIGOTINE [Suspect]
     Active Substance: ROTIGOTINE
     Indication: Parkinson^s disease
     Dosage: 8 MILLIGRAM, ONCE DAILY (QD)
     Route: 062
     Dates: start: 20240617, end: 20240707

REACTIONS (4)
  - Death [Fatal]
  - Metastasis [Unknown]
  - Liver operation [Unknown]
  - Liver disorder [Unknown]

NARRATIVE: CASE EVENT DATE: 20240707
